FAERS Safety Report 9719770 (Version 1)
Quarter: 2013Q4

REPORT INFORMATION
  Report Type: Spontaneous
  Country: MX (occurrence: MX)
  Receive Date: 20131128
  Receipt Date: 20131128
  Transmission Date: 20140711
  Serious: Yes (Death, Other)
  Sender: FDA-Public Use
  Company Number: MX-ROCHE-1310383

PATIENT
  Age: 51 Year
  Sex: 0

DRUGS (3)
  1. AVASTIN [Suspect]
     Indication: BREAST CANCER
     Route: 065
     Dates: start: 20100804, end: 20110301
  2. CARBOPLATINO [Concomitant]
     Indication: BREAST CANCER
     Route: 065
     Dates: start: 20100804, end: 20110301
  3. DOCETAXEL [Concomitant]
     Indication: BREAST CANCER
     Route: 065
     Dates: start: 20100804, end: 20110301

REACTIONS (3)
  - Death [Fatal]
  - Haematotoxicity [Unknown]
  - Disease progression [Unknown]
